FAERS Safety Report 8941658 (Version 1)
Quarter: 2012Q4

REPORT INFORMATION
  Report Type: 
  Country: BR (occurrence: BR)
  Receive Date: 20121203
  Receipt Date: 20121203
  Transmission Date: 20130627
  Serious: Yes (Death)
  Sender: FDA-Public Use
  Company Number: PHHY2012BR109709

PATIENT
  Age: 75 Year
  Sex: Male
  Weight: 70 kg

DRUGS (1)
  1. STALEVO [Suspect]
     Indication: PARKINSON^S DISEASE
     Dosage: 2 DF, a day
     Route: 048

REACTIONS (5)
  - Infarction [Fatal]
  - Cardiac failure [Fatal]
  - Chest pain [Fatal]
  - Malaise [Fatal]
  - Cardiac disorder [Unknown]
